FAERS Safety Report 7693809-2 (Version None)
Quarter: 2011Q3

REPORT INFORMATION
  Report Type: 
  Country: None (occurrence: None)
  Receive Date: 20110819
  Receipt Date: 20110722
  Transmission Date: 20111222
  Serious: No
  Sender: FDA-Public Use
  Company Number: US-ALLERGAN-1109970US

PATIENT
  Sex: Male

DRUGS (2)
  1. LASTACAFT [Suspect]
     Indication: EYE PRURITUS
  2. LASTACAFT [Suspect]
     Indication: SEASONAL ALLERGY
     Dosage: UNK
     Route: 047

REACTIONS (1)
  - OCULAR HYPERAEMIA [None]
